FAERS Safety Report 24007905 (Version 1)
Quarter: 2024Q2

REPORT INFORMATION
  Report Type: Spontaneous
  Country: SE (occurrence: SE)
  Receive Date: 20240625
  Receipt Date: 20240625
  Transmission Date: 20240716
  Serious: Yes (Other)
  Sender: FDA-Public Use
  Company Number: None

PATIENT
  Age: 85 Year
  Sex: Female

DRUGS (1)
  1. PROLIA [Suspect]
     Active Substance: DENOSUMAB
     Indication: Osteoporosis
     Dosage: UNK UNK, Q6MO (2 TIMES A YEAR)
     Route: 030
     Dates: start: 20161004, end: 20240611

REACTIONS (1)
  - Osteonecrosis of external auditory canal [Not Recovered/Not Resolved]

NARRATIVE: CASE EVENT DATE: 20220217
